FAERS Safety Report 11786947 (Version 2)
Quarter: 2015Q4

REPORT INFORMATION
  Report Type: Spontaneous
  Country: US (occurrence: US)
  Receive Date: 20151130
  Receipt Date: 20151230
  Transmission Date: 20160305
  Serious: Yes (Hospitalization)
  Sender: FDA-Public Use
  Company Number: US-JNJFOC-20151120364

PATIENT
  Age: 21 Year
  Sex: Male
  Weight: 68.72 kg

DRUGS (6)
  1. PREDNISONE. [Concomitant]
     Active Substance: PREDNISONE
     Indication: ABDOMINAL PAIN
     Route: 065
     Dates: start: 20150309
  2. HUMIRA [Suspect]
     Active Substance: ADALIMUMAB
     Indication: PRODUCT USED FOR UNKNOWN INDICATION
     Route: 065
     Dates: start: 20150825, end: 2015
  3. LEVSIN [Concomitant]
     Active Substance: HYOSCYAMINE SULFATE
     Indication: ABDOMINAL PAIN
     Route: 065
     Dates: start: 20150409
  4. HUMIRA [Suspect]
     Active Substance: ADALIMUMAB
     Indication: PRODUCT USED FOR UNKNOWN INDICATION
     Route: 065
     Dates: start: 2012
  5. STELARA [Suspect]
     Active Substance: USTEKINUMAB
     Indication: CROHN^S DISEASE
     Route: 058
     Dates: start: 20150911
  6. ROWASA [Concomitant]
     Active Substance: MESALAMINE
     Indication: ABDOMINAL PAIN
     Dosage: FOR 10 DAYS
     Route: 065
     Dates: start: 20150110

REACTIONS (3)
  - Product use issue [Unknown]
  - Off label use [Unknown]
  - Meningitis viral [Recovered/Resolved]

NARRATIVE: CASE EVENT DATE: 20150911
